FAERS Safety Report 8082410 (Version 4)
Quarter: 2014Q2

REPORT INFORMATION
  Report Type: Spontaneous
  Country: US (occurrence: US)
  Receive Date: 20110809
  Receipt Date: 20140625
  Transmission Date: 20141212
  Serious: Yes (Death, Hospitalization)
  Sender: FDA-Public Use
  Company Number: US-GLAXOSMITHKLINE-A0940112A

PATIENT
  Age: 64 Year
  Sex: Female
  Weight: 124.1 kg

DRUGS (11)
  1. AVANDIA [Suspect]
     Indication: DIABETES MELLITUS
     Route: 048
     Dates: start: 20000327, end: 200906
  2. AMARYL [Concomitant]
  3. INSULIN [Concomitant]
  4. CELEBREX [Concomitant]
  5. SYNTHROID [Concomitant]
  6. ZOCOR [Concomitant]
  7. ZOLOFT [Concomitant]
  8. ACCUPRIL [Concomitant]
  9. NORVASC [Concomitant]
  10. PREMARIN [Concomitant]
  11. DYNACIRC [Concomitant]

REACTIONS (5)
  - Cardiac arrest [Fatal]
  - Cerebrovascular accident [Unknown]
  - Cardiac failure congestive [Unknown]
  - Transient ischaemic attack [Unknown]
  - Myocardial infarction [Unknown]
